FAERS Safety Report 6422789-2 (Version None)
Quarter: 2009Q4

REPORT INFORMATION
  Report Type: 
  Country: None (occurrence: None)
  Receive Date: 20091102
  Receipt Date: 20091019
  Transmission Date: 20100525
  Serious: No
  Sender: FDA-Public Use
  Company Number: PHHY2009FR42717

PATIENT
  Sex: Female
  Weight: 76 kg

DRUGS (4)
  1. ACLASTA [Suspect]
     Indication: OSTEOPOROSIS POSTMENOPAUSAL
     Dosage: UNK
     Dates: start: 20081030
  2. BUMEX [Concomitant]
     Dosage: 1 DF PER DAY
  3. SECTRAL [Concomitant]
     Indication: HYPERTENSION
     Dosage: 1 DF PER DAY
  4. LIPANTHYL [Concomitant]
     Indication: HYPERCHOLESTEROLAEMIA
     Dosage: 1 DF PER DAY

REACTIONS (2)
  - PERIODONTITIS [None]
  - TOOTH DISORDER [None]
